FAERS Safety Report 15232534 (Version 3)
Quarter: 2022Q3

REPORT INFORMATION
  Report Type: Spontaneous
  Country: DE (occurrence: DE)
  Receive Date: 20180802
  Receipt Date: 20220826
  Transmission Date: 20221027
  Serious: Yes (Death, Other)
  Sender: FDA-Public Use
  Company Number: PHHY2017DE204404

PATIENT
  Sex: Male

DRUGS (18)
  1. VORICONAZOLE [Suspect]
     Active Substance: VORICONAZOLE
     Indication: Antifungal treatment
     Dosage: 6 MG/KG, QD (6 MG/KG/DAY, BID, LOADING DOSE, 12MG/KG EVERY DAY)
     Route: 042
     Dates: start: 201409, end: 201409
  2. VORICONAZOLE [Suspect]
     Active Substance: VORICONAZOLE
     Indication: Aspergillus infection
     Dosage: 4 MG/KG, QD (8 MG/KG/DAY, EVERY DAY)
     Route: 042
     Dates: start: 201409, end: 201409
  3. VORICONAZOLE [Suspect]
     Active Substance: VORICONAZOLE
     Dosage: 8 MG/KG, QD (EVERY DAY)
     Route: 042
     Dates: start: 201409, end: 201409
  4. CASPOFUNGIN ACETATE [Suspect]
     Active Substance: CASPOFUNGIN ACETATE
     Indication: Antifungal treatment
     Dosage: 280 MG, QD (70 MG, QID (LOADING DOSE))
     Route: 042
     Dates: start: 201409, end: 201409
  5. CASPOFUNGIN ACETATE [Suspect]
     Active Substance: CASPOFUNGIN ACETATE
     Dosage: 50 MG, QD (200 MG EVERYDAY)
     Route: 042
     Dates: start: 201409
  6. CASPOFUNGIN ACETATE [Suspect]
     Active Substance: CASPOFUNGIN ACETATE
     Dosage: 200 MG, QD
     Route: 042
     Dates: start: 201409
  7. POSACONAZOLE [Suspect]
     Active Substance: POSACONAZOLE
     Indication: Antifungal prophylaxis
     Dosage: 600 MG, TID
     Route: 048
     Dates: start: 201405
  8. AMPHOTERICIN B [Suspect]
     Active Substance: AMPHOTERICIN B
     Indication: Aspergillus infection
     Dosage: 3 MG/KG, QD (SINCE DAY -6)
     Route: 042
     Dates: start: 201409, end: 201409
  9. AMPHOTERICIN B [Suspect]
     Active Substance: AMPHOTERICIN B
     Indication: Antifungal treatment
  10. FLUDARABINE PHOSPHATE [Concomitant]
     Active Substance: FLUDARABINE PHOSPHATE
     Indication: Bone marrow conditioning regimen
     Dosage: 30 MG/M2, QD (DAYS -6 TO -2)
     Route: 016
     Dates: start: 201409
  11. CYTARABINE [Concomitant]
     Active Substance: CYTARABINE
     Indication: Acute myeloid leukaemia
     Dosage: 100 MG/M2, QD (DAYS 1 TO 7)
     Route: 042
     Dates: start: 201405
  12. CYTARABINE [Concomitant]
     Active Substance: CYTARABINE
     Dosage: 2 DOSAGE FORM, QD (2000 MG/M2/DAY B.I.D., DAYS 1 AND 5)
     Route: 042
     Dates: start: 201408
  13. IDARUBICIN HYDROCHLORIDE [Concomitant]
     Active Substance: IDARUBICIN HYDROCHLORIDE
     Indication: Acute myeloid leukaemia
     Dosage: 12 MG/M2, QD (DAYS 2, 4 AND 6)
     Route: 042
     Dates: start: 201405
  14. MELPHALAN [Concomitant]
     Active Substance: MELPHALAN
     Indication: Bone marrow conditioning regimen
     Dosage: 150 MG/M2 (ON DAY -2)
     Route: 042
     Dates: start: 201409
  15. DECITABINE [Concomitant]
     Active Substance: DECITABINE
     Indication: Acute myeloid leukaemia
     Dosage: 20 MG/M2, QD (DAYS 1 TO 5)
     Route: 042
     Dates: start: 2014
  16. ETOPOSIDE [Concomitant]
     Active Substance: ETOPOSIDE
     Indication: Acute myeloid leukaemia
     Dosage: 100 MG/M2, QD (DAYS 3 TO 7
     Route: 042
     Dates: start: 201405
  17. THYMOCYTE IMMUNE GLOBULIN NOS [Concomitant]
     Active Substance: THYMOCYTE IMMUNE GLOBULIN NOS
     Indication: Bone marrow conditioning regimen
     Dosage: 10 MG/KG, QD (DAYS -5 TO -2)
     Route: 042
     Dates: start: 201409
  18. MITOXANTRONE HYDROCHLORIDE [Concomitant]
     Active Substance: MITOXANTRONE HYDROCHLORIDE
     Indication: Acute myeloid leukaemia
     Dosage: 30 MG/M2, QD (DAYS 1 AND 5)
     Route: 042
     Dates: start: 201408

REACTIONS (5)
  - Drug ineffective [Fatal]
  - Bronchopulmonary aspergillosis [Fatal]
  - Cerebral aspergillosis [Fatal]
  - Aspergillus infection [Fatal]
  - Drug resistance [Fatal]
